FAERS Safety Report 5187155-9 (Version None)
Quarter: 2006Q4

REPORT INFORMATION
  Report Type: 
  Country: None (occurrence: None)
  Receive Date: 20061214
  Receipt Date: 20061207
  Transmission Date: 20070319
  Serious: Yes (Hospitalization)
  Sender: FDA-Public Use
  Company Number: S06-CAN-05189-01

PATIENT
  Age: 34 Year
  Sex: Female

DRUGS (5)
  1. CERVIDIL [Suspect]
     Indication: LABOUR INDUCTION
     Dosage: 10 MG ONCE VG
     Dates: start: 20050422, end: 20050401
  2. MORPHINE [Suspect]
     Indication: LABOUR PAIN
     Dosage: 5 MG ONCE IM
     Route: 030
     Dates: start: 20050423, end: 20050423
  3. MORPHINE [Suspect]
     Indication: LABOUR PAIN
     Dosage: 15 MG ONCE IM
     Route: 030
     Dates: start: 20050423, end: 20050423
  4. ATIVAN [Concomitant]
  5. GRAVOL TAB [Concomitant]

REACTIONS (8)
  - ALANINE AMINOTRANSFERASE INCREASED [None]
  - ASPARTATE AMINOTRANSFERASE INCREASED [None]
  - CAESAREAN SECTION [None]
  - DRUG EXPOSURE DURING PREGNANCY [None]
  - PROTEIN URINE PRESENT [None]
  - STILLBIRTH [None]
  - VISUAL DISTURBANCE [None]
  - WEIGHT INCREASED [None]
